FAERS Safety Report 12589205 (Version 1)
Quarter: 2016Q3

REPORT INFORMATION
  Report Type: Spontaneous
  Country: US (occurrence: US)
  Receive Date: 20160725
  Receipt Date: 20160725
  Transmission Date: 20161109
  Serious: No
  Sender: FDA-Public Use
  Company Number: US-JNJFOC-20160514372

PATIENT
  Age: 79 Year
  Sex: Female
  Weight: 64.41 kg

DRUGS (8)
  1. MOTRIN IB [Suspect]
     Active Substance: IBUPROFEN
     Indication: ARTHRALGIA
     Dosage: 2 LIQUID GELS-EVERY 5-6 HOURS.
     Route: 048
     Dates: start: 20160512, end: 20160513
  2. HYDROCODONE [Concomitant]
     Active Substance: HYDROCODONE
     Indication: PROCEDURAL PAIN
     Dosage: SINCE 3-4 WEEKS
     Route: 065
  3. LOVASTATIN. [Concomitant]
     Active Substance: LOVASTATIN
     Indication: BLOOD CHOLESTEROL INCREASED
     Dosage: SINCE 8-9 YEARS
     Route: 065
  4. LOSARTIN [Concomitant]
     Active Substance: LOSARTAN
     Indication: HYPERTENSION
     Dosage: SINCE 7-8 YEARS
     Route: 065
  5. MOTRIN IB [Suspect]
     Active Substance: IBUPROFEN
     Indication: PAIN
     Dosage: 1 CAPLET AND THEN WENT TO 2 CAPLETS AFTER THAT EVERY 5 HOURS
     Route: 048
     Dates: start: 20160508, end: 20160510
  6. HYDROCODONE [Concomitant]
     Active Substance: HYDROCODONE
     Indication: PROCEDURAL PAIN
     Dosage: SINCE 3-4 WEEKS
     Route: 065
  7. MOTRIN IB [Suspect]
     Active Substance: IBUPROFEN
     Route: 048
  8. MOTRIN IB [Suspect]
     Active Substance: IBUPROFEN
     Route: 048

REACTIONS (3)
  - Nausea [Not Recovered/Not Resolved]
  - Abdominal discomfort [Recovered/Resolved]
  - Diarrhoea [Recovered/Resolved]

NARRATIVE: CASE EVENT DATE: 20160508
